FAERS Safety Report 22316629 (Version 4)
Quarter: 2025Q2

REPORT INFORMATION
  Report Type: Spontaneous
  Country: US (occurrence: US)
  Receive Date: 20230513
  Receipt Date: 20250410
  Transmission Date: 20250717
  Serious: Yes (Hospitalization)
  Sender: NOVEN
  Company Number: US-NOVEN PHARMACEUTICALS, INC.-2023-NOV-US000468

PATIENT
  Age: 52 Year
  Sex: Male
  Weight: 145.13 kg

DRUGS (6)
  1. DAYTRANA [Suspect]
     Active Substance: METHYLPHENIDATE
     Indication: Attention deficit hyperactivity disorder
     Route: 062
  2. DAYTRANA [Suspect]
     Active Substance: METHYLPHENIDATE
     Route: 062
  3. DAYTRANA [Suspect]
     Active Substance: METHYLPHENIDATE
     Route: 062
  4. DAYTRANA [Suspect]
     Active Substance: METHYLPHENIDATE
     Route: 062
  5. DAYTRANA [Suspect]
     Active Substance: METHYLPHENIDATE
     Route: 062
  6. MELATONIN [Concomitant]
     Active Substance: MELATONIN
     Indication: Melatonin deficiency
     Route: 065

REACTIONS (2)
  - Pineocytoma [Recovered/Resolved with Sequelae]
  - Postprandial hypoglycaemia [Unknown]

NARRATIVE: CASE EVENT DATE: 20160101
